FAERS Safety Report 13404733 (Version 1)
Quarter: 2017Q2

REPORT INFORMATION
  Report Type: Spontaneous
  Country: US (occurrence: US)
  Receive Date: 20170405
  Receipt Date: 20170405
  Transmission Date: 20170830
  Serious: No
  Sender: FDA-Public Use
  Company Number: None

PATIENT
  Age: 43 Year
  Sex: Female
  Weight: 79.45 kg

DRUGS (3)
  1. LOLO ESTRIN [Concomitant]
  2. PARAGARD T 380A [Suspect]
     Active Substance: COPPER
     Indication: CONTRACEPTION
     Dates: start: 20170320, end: 20170321
  3. ONE A DAY VITAMINS FOR WOMEN [Concomitant]

REACTIONS (3)
  - Urticaria [None]
  - Peripheral swelling [None]
  - Vulvovaginal pain [None]

NARRATIVE: CASE EVENT DATE: 20170321
